FAERS Safety Report 16867570 (Version 1)
Quarter: 2019Q4

REPORT INFORMATION
  Report Type: Spontaneous
  Country: US (occurrence: US)
  Receive Date: 20190927
  Receipt Date: 20190927
  Transmission Date: 20200122
  Serious: No
  Sender: FDA-Public Use
  Company Number: None

PATIENT
  Age: 31 Year
  Sex: Female
  Weight: 67.13 kg

DRUGS (3)
  1. FISH OIL [Concomitant]
     Active Substance: FISH OIL
  2. MVI [Concomitant]
     Active Substance: VITAMINS
  3. MIRENA [Suspect]
     Active Substance: LEVONORGESTREL

REACTIONS (7)
  - Dizziness [None]
  - Nervousness [None]
  - Hypertension [None]
  - Palpitations [None]
  - Anxiety [None]
  - Panic attack [None]
  - Malaise [None]

NARRATIVE: CASE EVENT DATE: 20190201
